FAERS Safety Report 6710954-6 (Version None)
Quarter: 2010Q2

REPORT INFORMATION
  Report Type: 
  Country: None (occurrence: None)
  Receive Date: 20100505
  Receipt Date: 20100421
  Transmission Date: 20101027
  Serious: Yes (Other)
  Sender: FDA-Public Use
  Company Number: GR-RANBAXY-2010RR-33336

PATIENT
  Age: 52 Year
  Sex: Female

DRUGS (2)
  1. FLUOXETINE [Suspect]
     Indication: DEPRESSION
     Dosage: 60 MG, UNK
  2. ALPRAZOLAM [Concomitant]
     Indication: DEPRESSION
     Dosage: 1.5 MG, UNK

REACTIONS (9)
  - BRADYKINESIA [None]
  - DRUG EFFECT DECREASED [None]
  - EMOTIONAL DISTRESS [None]
  - EXTRAPYRAMIDAL DISORDER [None]
  - MASKED FACIES [None]
  - MUSCLE RIGIDITY [None]
  - PARKINSONISM [None]
  - SELF-INJURIOUS IDEATION [None]
  - SUICIDAL IDEATION [None]
